FAERS Safety Report 8593242-5 (Version None)
Quarter: 2012Q3

REPORT INFORMATION
  Report Type: 
  Country: None (occurrence: None)
  Receive Date: 20120814
  Receipt Date: 20120807
  Transmission Date: 20120928
  Serious: Yes (Other)
  Sender: FDA-Public Use
  Company Number: JP-VERTEX PHARMACEUTICALS INC.-AE-2012-011963

PATIENT
  Age: 56 Year
  Sex: Female

DRUGS (7)
  1. TELAVIC (TELAPREVIR) [Suspect]
     Indication: HEPATITIS C
     Route: 048
     Dates: start: 20120612
  2. RIBAVIRIN [Concomitant]
     Indication: HEPATITIS C
     Route: 048
     Dates: start: 20120612
  3. MEDICON [Concomitant]
     Route: 048
  4. TRANSAMINE CAP [Concomitant]
     Route: 048
  5. ASPIRIN [Concomitant]
     Route: 048
  6. ASMOTIN [Concomitant]
     Route: 048
  7. PEGINTERFERON ALFA-2B [Concomitant]
     Indication: HEPATITIS C
     Route: 058
     Dates: start: 20120612

REACTIONS (6)
  - INSOMNIA [None]
  - BLOOD CREATININE INCREASED [None]
  - PYREXIA [None]
  - ARTHRALGIA [None]
  - BLOOD URIC ACID INCREASED [None]
  - NEUTROPHIL COUNT DECREASED [None]
